FAERS Safety Report 4429974-X (Version None)
Quarter: 2004Q3

REPORT INFORMATION
  Report Type: 
  Country: None (occurrence: None)
  Receive Date: 20040817
  Receipt Date: 20040806
  Transmission Date: 20050211
  Serious: No
  Sender: FDA-Public Use
  Company Number: 2004UW16731

PATIENT
  Age: 20 Year
  Sex: Female

DRUGS (1)
  1. SEROQUEL [Suspect]
     Indication: INSOMNIA

REACTIONS (1)
  - VISUAL DISTURBANCE [None]
